FAERS Safety Report 18068261 (Version 5)
Quarter: 2022Q1

REPORT INFORMATION
  Report Type: Spontaneous
  Country: JP (occurrence: JP)
  Receive Date: 20200724
  Receipt Date: 20220130
  Transmission Date: 20220423
  Serious: Yes (Hospitalization, Other)
  Sender: FDA-Public Use
  Company Number: JP-JAZZ-2020-JP-009222

PATIENT
  Age: 31 Year
  Sex: Female
  Weight: 47.6 kg

DRUGS (2)
  1. DEFITELIO [Suspect]
     Active Substance: DEFIBROTIDE SODIUM
     Indication: Venoocclusive liver disease
     Dosage: 25 MG/KG/DAY
     Route: 042
     Dates: start: 20200603, end: 20200625
  2. GANCICLOVIR [Suspect]
     Active Substance: GANCICLOVIR
     Indication: Product used for unknown indication
     Dosage: UNKNOWN DOSE

REACTIONS (2)
  - Cystitis haemorrhagic [Recovered/Resolved]
  - Off label use [Unknown]

NARRATIVE: CASE EVENT DATE: 20200603
